FAERS Safety Report 7967930-5 (Version None)
Quarter: 2011Q4

REPORT INFORMATION
  Report Type: 
  Country: None (occurrence: None)
  Receive Date: 20111208
  Receipt Date: 20111208
  Transmission Date: 20120403
  Serious: Yes (Other)
  Sender: FDA-Public Use
  Company Number: None

PATIENT
  Age: 3 Year
  Sex: Female

DRUGS (1)
  1. SCOPE MOUTHWASH, ORIGINAL MINT FLAVOR (ETHANOL 15%, CETYLPYRIDINIUM CH [Suspect]
     Dosage: UNK DOSE, 1 ONLY,ORAL
     Dates: start: 20111111, end: 20111111

REACTIONS (6)
  - HEART RATE DECREASED [None]
  - BLOOD ALCOHOL INCREASED [None]
  - ACCIDENTAL DRUG INTAKE BY CHILD [None]
  - BLOOD GLUCOSE DECREASED [None]
  - INCORRECT ROUTE OF DRUG ADMINISTRATION [None]
  - LOSS OF CONSCIOUSNESS [None]
